FAERS Safety Report 12267296 (Version 6)
Quarter: 2018Q3

REPORT INFORMATION
  Report Type: Report from Study
  Country: US (occurrence: US)
  Receive Date: 20160414
  Receipt Date: 20180720
  Transmission Date: 20181010
  Serious: Yes (Death, Hospitalization)
  Sender: FDA-Public Use
  Company Number: PHHY2016US047585

PATIENT
  Age: 18 Year
  Sex: Female
  Weight: 82 kg

DRUGS (22)
  1. VITAMIN D3 [Concomitant]
     Active Substance: CHOLECALCIFEROL
     Indication: NUTRITIONAL SUPPLEMENTATION
     Dosage: UNK
     Route: 065
     Dates: start: 19970101
  2. VITAMIN D3 [Concomitant]
     Active Substance: CHOLECALCIFEROL
     Dosage: 1000 U, QD
     Route: 048
  3. PREDNISONE. [Concomitant]
     Active Substance: PREDNISONE
     Dosage: 30 MG, QD (20 MG IN AM AND 10 MG IN PM)
     Route: 065
  4. VORICONAZOLE. [Concomitant]
     Active Substance: VORICONAZOLE
     Indication: BRONCHOPULMONARY ASPERGILLOSIS ALLERGIC
     Dosage: UNK
     Route: 065
     Dates: start: 20160203, end: 20160606
  5. TOBI PODHALER [Suspect]
     Active Substance: TOBRAMYCIN
     Indication: PSEUDOMONAS INFECTION
     Dosage: 300 MG, BID (28 DAYS ON AND 28 DAYS OFF CYCLE)
     Route: 055
     Dates: start: 20160203, end: 20160309
  6. CAYSTON [Suspect]
     Active Substance: AZTREONAM
     Indication: PRODUCT USED FOR UNKNOWN INDICATION
     Dosage: 75 MG, TID (28 DAYS ON, 28 DAYS OFF (CURRENTLY OFF))
     Route: 055
     Dates: start: 20160406, end: 20160428
  7. ZENPEP [Concomitant]
     Active Substance: PANCRELIPASE AMYLASE\PANCRELIPASE LIPASE\PANCRELIPASE PROTEASE
     Indication: PANCREATIC FAILURE
     Dosage: 20 OT, QD DF, QD (4 CAPSULES WITH MEALS, 3 CAPSULES WITH SNACKS)
     Route: 065
  8. CYPROHEPTADINE. [Concomitant]
     Active Substance: CYPROHEPTADINE
     Dosage: 4 MG, UNK (BEFORE MEALS)
     Route: 048
  9. PULMOZYME [Concomitant]
     Active Substance: DORNASE ALFA
     Indication: CYSTIC FIBROSIS
     Dosage: UNK
     Route: 065
     Dates: start: 19970101
  10. ADVAIR HFA [Concomitant]
     Active Substance: FLUTICASONE PROPIONATE\SALMETEROL XINAFOATE
     Dosage: 1 DF (PUFF), BID
     Route: 055
  11. CYPROHEPTADINE. [Concomitant]
     Active Substance: CYPROHEPTADINE
     Indication: MALNUTRITION
     Dosage: UNK
     Route: 065
     Dates: start: 20150701
  12. ALBUTEROL. [Concomitant]
     Active Substance: ALBUTEROL
     Dosage: 3 ML, QID (2.5MG/3ML)
     Route: 055
  13. PREDNISONE. [Concomitant]
     Active Substance: PREDNISONE
     Indication: BRONCHOPULMONARY ASPERGILLOSIS ALLERGIC
     Dosage: UNK
     Route: 065
     Dates: start: 20140101, end: 20160304
  14. LANSOPRAZOLE. [Concomitant]
     Active Substance: LANSOPRAZOLE
     Indication: GASTROOESOPHAGEAL REFLUX DISEASE
     Dosage: UNK
     Route: 065
     Dates: start: 20020101
  15. PULMOZYME [Concomitant]
     Active Substance: DORNASE ALFA
     Dosage: 2.5 MG/2.5 ML, BID
     Route: 055
  16. ALBUTEROL. [Concomitant]
     Active Substance: ALBUTEROL
     Indication: CYSTIC FIBROSIS
     Dosage: UNK
     Route: 065
     Dates: start: 19970101
  17. NOVOLOG [Concomitant]
     Active Substance: INSULIN ASPART
     Indication: DIABETES MELLITUS
     Dosage: PRN
     Route: 065
     Dates: start: 20160201
  18. FEXOFENADINE [Concomitant]
     Active Substance: FEXOFENADINE\FEXOFENADINE HYDROCHLORIDE
     Indication: CHRONIC SINUSITIS
     Dosage: UNK
     Route: 065
     Dates: start: 20130101
  19. LANSOPRAZOLE. [Concomitant]
     Active Substance: LANSOPRAZOLE
     Dosage: 30 MG, BID
     Route: 048
  20. TOBI PODHALER [Suspect]
     Active Substance: TOBRAMYCIN
     Indication: CYSTIC FIBROSIS
     Dosage: 300 MG, BID (28 DAYS ON AND 28 DAYS OFF CYCLE)
     Route: 055
     Dates: start: 20160504, end: 20160601
  21. CAYSTON [Suspect]
     Active Substance: AZTREONAM
     Dosage: 75 MG, TID (28 DAYS ON, 28 DAYS OFF (CURRENTLY OFF))
     Route: 055
     Dates: start: 20160602, end: 20160606
  22. ADVAIR HFA [Concomitant]
     Active Substance: FLUTICASONE PROPIONATE\SALMETEROL XINAFOATE
     Indication: CYSTIC FIBROSIS
     Dosage: UNK
     Route: 065
     Dates: start: 20100101

REACTIONS (16)
  - Vomiting [Unknown]
  - Hyperhidrosis [Unknown]
  - Nausea [Unknown]
  - Hypoxia [Unknown]
  - Dyspnoea [Unknown]
  - Pyrexia [Unknown]
  - Cough [Unknown]
  - Decreased appetite [Unknown]
  - Weight decreased [Unknown]
  - Infective pulmonary exacerbation of cystic fibrosis [Not Recovered/Not Resolved]
  - Upper-airway cough syndrome [Unknown]
  - Post procedural complication [Fatal]
  - Back pain [Unknown]
  - Influenza [Recovered/Resolved]
  - Dyspnoea at rest [Unknown]
  - Rales [Unknown]

NARRATIVE: CASE EVENT DATE: 20160305
